FAERS Safety Report 17803625 (Version 2)
Quarter: 2020Q3

REPORT INFORMATION
  Report Type: Spontaneous
  Country: US (occurrence: US)
  Receive Date: 20200519
  Receipt Date: 20200731
  Transmission Date: 20201102
  Serious: No
  Sender: FDA-Public Use
  Company Number: US-VERTEX PHARMACEUTICALS-2020-010998

PATIENT
  Sex: Female
  Weight: 28.57 kg

DRUGS (1)
  1. ORKAMBI [Suspect]
     Active Substance: IVACAFTOR\LUMACAFTOR
     Indication: CYSTIC FIBROSIS
     Dosage: UNK REGULAR DOSE
     Route: 048
     Dates: start: 20170826

REACTIONS (2)
  - Pulmonary function test decreased [Unknown]
  - Cough [Not Recovered/Not Resolved]
